FAERS Safety Report 9799981 (Version 1)
Quarter: 2014Q1

REPORT INFORMATION
  Report Type: Spontaneous
  Country: US (occurrence: US)
  Receive Date: 20140106
  Receipt Date: 20140106
  Transmission Date: 20141002
  Serious: Yes (Other)
  Sender: FDA-Public Use
  Company Number: US-GILEAD-2010-0030362

PATIENT
  Age: 69 Year
  Sex: Female

DRUGS (14)
  1. LETAIRIS [Suspect]
     Indication: PULMONARY ARTERIAL HYPERTENSION
     Route: 048
     Dates: start: 20100617
  2. FISH OIL [Concomitant]
  3. CALCIUM [Concomitant]
  4. MULTIVITAMINS [Concomitant]
  5. LORAZEPAM [Concomitant]
  6. PAXIL [Concomitant]
  7. NEXIUM [Concomitant]
  8. CARDURA [Concomitant]
  9. ASPIRIN [Concomitant]
  10. LIPITOR [Concomitant]
  11. VALTURNA [Concomitant]
  12. ROZEREM [Concomitant]
  13. LASIX [Concomitant]
  14. BYSTOLIC [Concomitant]

REACTIONS (2)
  - Cardiac failure congestive [Not Recovered/Not Resolved]
  - Oedema [Recovering/Resolving]
